FAERS Safety Report 23274706 (Version 4)
Quarter: 2024Q2

REPORT INFORMATION
  Report Type: Spontaneous
  Country: US (occurrence: US)
  Receive Date: 20231208
  Receipt Date: 20240503
  Transmission Date: 20240716
  Serious: No
  Sender: FDA-Public Use
  Company Number: US-Nobelpharma America, LLC-NPA-2023-02370

PATIENT
  Age: 8 Year
  Sex: Female

DRUGS (1)
  1. HYFTOR [Suspect]
     Active Substance: SIROLIMUS
     Indication: Nail hypertrophy
     Dosage: APPLY TOPICALLY TO PAINFUL SOLES OF FEET TWICE DAILY
     Dates: start: 20230616

REACTIONS (10)
  - Dry skin [Unknown]
  - Erythema [Unknown]
  - Illness [Unknown]
  - Product dose omission issue [None]
  - Product use in unapproved indication [None]
  - Dry skin [Unknown]
  - Nasopharyngitis [Unknown]
  - Rash [Unknown]
  - Application site dryness [Unknown]
  - Application site erythema [Unknown]

NARRATIVE: CASE EVENT DATE: 20240301
